FAERS Safety Report 5231177-6 (Version None)
Quarter: 2007Q1

REPORT INFORMATION
  Report Type: 
  Country: None (occurrence: None)
  Receive Date: 20070206
  Receipt Date: 20070125
  Transmission Date: 20070707
  Serious: Yes (Hospitalization)
  Sender: FDA-Public Use
  Company Number: GB-ELI_LILLY_AND_COMPANY-GB200701004650

PATIENT
  Age: 40 Year
  Sex: Male

DRUGS (3)
  1. CYMBALTA [Suspect]
     Indication: DEPRESSION
     Dosage: 60 MG, DAILY (1/D)
     Dates: start: 20061013
  2. AMITRIPTYLINE HCL [Concomitant]
     Dosage: 100 MG, UNK
  3. DIAZEPAM [Concomitant]

REACTIONS (2)
  - COMA [None]
  - OVERDOSE [None]
